FAERS Safety Report 4543109-4 (Version None)
Quarter: 2004Q4

REPORT INFORMATION
  Report Type: 
  Country: None (occurrence: None)
  Receive Date: 20041229
  Receipt Date: 20041223
  Transmission Date: 20050328
  Serious: Yes (Death)
  Sender: FDA-Public Use
  Company Number: HQWYE171423DEC04

PATIENT
  Age: 58 Year
  Sex: Male

DRUGS (6)
  1. PANTOPRAZOLE SODIUM [Suspect]
     Indication: ULCER
     Dosage: 1 DOSAGE FORM 1X PER 1 DAY ORAL
     Route: 048
     Dates: start: 20040601, end: 20040701
  2. AMOXICILLIN [Suspect]
     Indication: PROPHYLAXIS
     Dosage: 1 G 2X PER 1 DAY ORAL
     Route: 048
     Dates: start: 20040601, end: 20040601
  3. OMEPRAZOLE [Suspect]
     Indication: PROPHYLAXIS
     Dosage: 1 DOSAGE FORM 1X PER 1 DAY ORAL
     Route: 048
     Dates: start: 20041015, end: 20041028
  4. CLARITHROMYCIN [Concomitant]
  5. ALDACTONE [Concomitant]
  6. LASIX [Concomitant]

REACTIONS (3)
  - HEPATITIS TOXIC [None]
  - NEPHRITIS INTERSTITIAL [None]
  - RENAL FAILURE ACUTE [None]
